FAERS Safety Report 5216681-9 (Version None)
Quarter: 2006Q4

REPORT INFORMATION
  Report Type: 
  Country: None (occurrence: None)
  Receive Date: 20061130
  Receipt Date: 20060417
  Transmission Date: 20070319
  Serious: Yes (Hospitalization)
  Sender: FDA-Public Use
  Company Number: US_0509122436

PATIENT
  Age: 47 Year
  Sex: Female
  Weight: 141.5 kg

DRUGS (10)
  1. ZYPREXA [Suspect]
     Dosage: 30 MG, DAILY (1/D)
     Dates: start: 20041001
  2. RISPERDAL  /SWE/(RISPERIDONE) [Concomitant]
  3. DEPAKOTE [Concomitant]
  4. LITHIUM CARBONATE [Concomitant]
  5. HALDOL SOLUTAB [Concomitant]
  6. ARIPIPRAZOLE [Concomitant]
  7. CLOZAPINE [Concomitant]
  8. CHLORPROMAZINE [Concomitant]
  9. THIOTHIXENE [Concomitant]
  10. CARBAMAZEPINE [Concomitant]

REACTIONS (3)
  - DIABETES MELLITUS [None]
  - DIABETIC KETOACIDOSIS [None]
  - WEIGHT INCREASED [None]
